FAERS Safety Report 25243730 (Version 1)
Quarter: 2025Q2

REPORT INFORMATION
  Report Type: Other
  Country: FR (occurrence: FR)
  Receive Date: 20250428
  Receipt Date: 20250428
  Transmission Date: 20250717
  Serious: Yes (Hospitalization)
  Sender: Atnahs Healthcare
  Company Number: None

PATIENT
  Age: 17 Year
  Sex: Female
  Weight: 70 kg

DRUGS (4)
  1. VALIUM [Suspect]
     Active Substance: DIAZEPAM
     Indication: Intentional overdose
     Route: 048
     Dates: start: 20250305, end: 20250305
  2. CODEINE [Suspect]
     Active Substance: CODEINE
     Indication: Intentional overdose
     Route: 048
     Dates: start: 20250305, end: 20250305
  3. LOXAPINE SUCCINATE [Suspect]
     Active Substance: LOXAPINE SUCCINATE
     Indication: Intentional overdose
     Route: 048
     Dates: start: 20250305, end: 20250305
  4. ACETAMINOPHEN [Concomitant]
     Active Substance: ACETAMINOPHEN
     Indication: Intentional overdose
     Route: 048
     Dates: start: 20250305, end: 20250305

REACTIONS (4)
  - Poisoning deliberate [Recovered/Resolved]
  - Miosis [Recovered/Resolved]
  - Somnolence [Recovered/Resolved]
  - Hypotension [Recovered/Resolved]

NARRATIVE: CASE EVENT DATE: 20250305
